FAERS Safety Report 19676123 (Version 1)
Quarter: 2021Q3

REPORT INFORMATION
  Report Type: Spontaneous
  Country: JP (occurrence: JP)
  Receive Date: 20210809
  Receipt Date: 20210809
  Transmission Date: 20211014
  Serious: Yes (Life-Threatening, Hospitalization)
  Sender: FDA-Public Use
  Company Number: JP-TEVA-2021-JP-1940035

PATIENT
  Sex: Female

DRUGS (7)
  1. PREDNISOLONE. [Suspect]
     Active Substance: PREDNISOLONE
     Indication: CHYLOTHORAX
     Dosage: 2 MG/KG DAILY;
     Route: 065
  2. POVIDONE?IODINE. [Suspect]
     Active Substance: POVIDONE-IODINE
     Indication: CHYLOTHORAX
     Dosage: CHEMICAL PLEURODESIS OF THE LEFT THORAX WITH 4% POVIDONE?IODINE ON DAY OF LIFE 51 AND 55
     Route: 065
  3. ETILEFRINE [Suspect]
     Active Substance: ETILEFRINE
     Indication: CHYLOTHORAX
     Dosage: 0.5 MCG/KG/H STARTED ON DAY OF LIFE 84
     Route: 042
  4. OCTREOTIDE. [Suspect]
     Active Substance: OCTREOTIDE
     Dosage: 10 MICROG/KG/H ON DOL 52
     Route: 065
  5. OCTREOTIDE. [Suspect]
     Active Substance: OCTREOTIDE
     Indication: CHYLOTHORAX
     Dosage: 1 MCG/KG/H WHICH WAS GRADUALLY INCREASED TO 9 MCG/KG/H
     Route: 065
  6. ETILEFRINE [Suspect]
     Active Substance: ETILEFRINE
     Dosage: THE DOSE WAS INCREASED TO 1 MCG/KG/H ON DAY OF LIFE 86
     Route: 042
  7. ETILEFRINE [Suspect]
     Active Substance: ETILEFRINE
     Dosage: DECREASED BY 0.3 MCG/KG/H EVERY 2 DAYS UNTIL WITHDRAWAL AFTER IMPROVEMENT IN CHYLOTHORAX
     Route: 042

REACTIONS (2)
  - Off label use [Unknown]
  - Drug ineffective [Unknown]
